FAERS Safety Report 6083932-0 (Version None)
Quarter: 2009Q1

REPORT INFORMATION
  Report Type: 
  Country: None (occurrence: None)
  Receive Date: 20090217
  Receipt Date: 20090217
  Transmission Date: 20090719
  Serious: Yes (Other)
  Sender: FDA-Public Use
  Company Number: None

PATIENT
  Age: 41 Year
  Sex: Female
  Weight: 82.5547 kg

DRUGS (3)
  1. LEVOTHYROXINE SODIUM [Suspect]
     Indication: HYPOTHYROIDISM
     Dosage: 7 PO QD
     Route: 048
     Dates: start: 20080808, end: 20080922
  2. LEVOTHYROXINE SODIUM [Suspect]
     Dosage: 5 PO QD
     Route: 048
     Dates: start: 20080101, end: 20080801
  3. SYNTHROID [Suspect]

REACTIONS (4)
  - ABDOMINAL PAIN UPPER [None]
  - CHEST DISCOMFORT [None]
  - CHEST PAIN [None]
  - PRODUCT QUALITY ISSUE [None]
